FAERS Safety Report 15895226 (Version 1)
Quarter: 2019Q1

REPORT INFORMATION
  Report Type: Spontaneous
  Country: AU (occurrence: AU)
  Receive Date: 20190131
  Receipt Date: 20190131
  Transmission Date: 20190417
  Serious: Yes (Other)
  Sender: FDA-Public Use
  Company Number: AU-AMREGENT-20182342

PATIENT
  Age: 38 Year
  Sex: Female
  Weight: 54 kg

DRUGS (3)
  1. NASONEX [Concomitant]
     Active Substance: MOMETASONE FUROATE
     Dosage: UNKNOWN
     Route: 045
  2. CLARITINE [Concomitant]
     Active Substance: LORATADINE
     Dosage: UNKNOWN
     Route: 048
  3. FERINJECT [Suspect]
     Active Substance: FERRIC CARBOXYMALTOSE
     Dosage: 1000 MG
     Route: 041
     Dates: start: 20181126, end: 20181126

REACTIONS (10)
  - Hypotension [Unknown]
  - Tachycardia [Unknown]
  - Urticaria [Unknown]
  - Pruritus [Unknown]
  - Influenza like illness [Unknown]
  - Tremor [Unknown]
  - Mass [Unknown]
  - Pain [Unknown]
  - Dizziness [Unknown]
  - Product preparation error [Unknown]

NARRATIVE: CASE EVENT DATE: 201811
